FAERS Safety Report 6170479-6 (Version None)
Quarter: 2009Q2

REPORT INFORMATION
  Report Type: 
  Country: None (occurrence: None)
  Receive Date: 20090428
  Receipt Date: 20090424
  Transmission Date: 20091009
  Serious: Yes (Other)
  Sender: FDA-Public Use
  Company Number: TW-ABBOTT-09P-153-0569931-00

PATIENT
  Age: 33 Year
  Sex: Female
  Weight: 65 kg

DRUGS (1)
  1. REDUCTIL 15MG [Suspect]
     Indication: WEIGHT CONTROL
     Route: 048
     Dates: start: 20090216, end: 20090317

REACTIONS (1)
  - ABORTION INDUCED [None]
